FAERS Safety Report 8122382-X (Version None)
Quarter: 2012Q1

REPORT INFORMATION
  Report Type: 
  Country: None (occurrence: None)
  Receive Date: 20120208
  Receipt Date: 20120118
  Transmission Date: 20120608
  Serious: Yes (Other)
  Sender: FDA-Public Use
  Company Number: US-GLAXOSMITHKLINE-A0961984A

PATIENT
  Age: 21 Year
  Sex: Female

DRUGS (2)
  1. NO CONCURRENT MEDICATIONS [Concomitant]
  2. LAMICTAL [Suspect]
     Indication: AFFECTIVE DISORDER
     Dosage: 25MG PER DAY
     Route: 060
     Dates: start: 20120112, end: 20120117

REACTIONS (5)
  - DEHYDRATION [None]
  - PYREXIA [None]
  - HEADACHE [None]
  - ADVERSE DRUG REACTION [None]
  - RASH PAPULAR [None]
